FAERS Safety Report 5151762-X (Version None)
Quarter: 2006Q4

REPORT INFORMATION
  Report Type: 
  Country: None (occurrence: None)
  Receive Date: 20061106
  Receipt Date: 20060824
  Transmission Date: 20070319
  Serious: Yes (Other)
  Sender: FDA-Public Use
  Company Number: CHNY2006CH01344

PATIENT
  Age: 39 Year
  Sex: Female

DRUGS (6)
  1. ACETAMINOPHEN [Suspect]
     Dosage: 1 DF, QD, ORAL
     Route: 048
     Dates: start: 20060404, end: 20060404
  2. MOVICOL (MACROGOL, POTASSIUM CHLORIDE, SODIUM BICARBONATE, SODIUM CHLO [Suspect]
     Dosage: 1 DF, QD, ORAL
     Route: 048
     Dates: start: 20060312, end: 20060318
  3. LECICARBON (LECITHIN, SODIUM BICARBONATE, SODIUM PHOSPHATE MONOBASIC ( [Suspect]
     Dosage: 1 DF, QD, RECTAL
     Route: 054
     Dates: start: 20060327, end: 20060330
  4. RIOPAN (MAGALDRATE) [Suspect]
     Dosage: ORAL
     Route: 048
  5. PANTOZOL (PANTOPRAZOLE SODIUM) TABLET [Concomitant]
  6. TRANSIPEG /SCH/ (MACROGOL 3350, POTASSIUM CHLORIDE, SODIUM BICARBONATE [Concomitant]

REACTIONS (2)
  - ABORTION SPONTANEOUS [None]
  - DRUG EXPOSURE DURING PREGNANCY [None]
